FAERS Safety Report 12207779 (Version 2)
Quarter: 2016Q1

REPORT INFORMATION
  Report Type: Spontaneous
  Country: CH (occurrence: SE)
  Receive Date: 20160324
  Receipt Date: 20160330
  Transmission Date: 20160526
  Serious: Yes (Death)
  Sender: FDA-Public Use
  Company Number: CH-LPDUSPRD-20160249

PATIENT
  Age: 66 Year
  Sex: Male

DRUGS (2)
  1. FERINJECT [Suspect]
     Active Substance: FERRIC CARBOXYMALTOSE
     Dosage: 500 MG
     Route: 065
     Dates: start: 2015, end: 2015
  2. WARFARIN [Concomitant]
     Active Substance: WARFARIN
     Dosage: DOSE NOT PROVIDED
     Route: 065
     Dates: start: 20141111

REACTIONS (11)
  - Tachypnoea [Unknown]
  - Acute respiratory failure [Fatal]
  - Respiratory distress [Unknown]
  - Depressed level of consciousness [Unknown]
  - Malaise [Unknown]
  - Cardiac arrest [Fatal]
  - Atrial fibrillation [Unknown]
  - Unresponsive to stimuli [Unknown]
  - Heart rate decreased [Unknown]
  - Dyspnoea [Unknown]
  - Blood pressure decreased [Unknown]

NARRATIVE: CASE EVENT DATE: 20150702
